FAERS Safety Report 5066366-7 (Version None)
Quarter: 2006Q3

REPORT INFORMATION
  Report Type: 
  Country: None (occurrence: None)
  Receive Date: 20060731
  Receipt Date: 20060731
  Transmission Date: 20061208
  Serious: Yes (Death, Hospitalization)
  Sender: FDA-Public Use
  Company Number: None

PATIENT
  Sex: Female
  Weight: 79.2 kg

DRUGS (1)
  1. NOLVADEX [Suspect]
     Dosage: 20 MG
     Dates: start: 20060618

REACTIONS (8)
  - DIARRHOEA [None]
  - HEPATIC ENZYME ABNORMAL [None]
  - HEPATIC FUNCTION ABNORMAL [None]
  - HEPATOMEGALY [None]
  - HYPOKALAEMIA [None]
  - HYPONATRAEMIA [None]
  - NAUSEA [None]
  - VOMITING [None]
